FAERS Safety Report 5490663-4 (Version None)
Quarter: 2007Q4

REPORT INFORMATION
  Report Type: 
  Country: None (occurrence: None)
  Receive Date: 20071019
  Receipt Date: 20071012
  Transmission Date: 20080405
  Serious: Yes (Other)
  Sender: FDA-Public Use
  Company Number: CA-ASTRAZENECA-2007UW23896

PATIENT
  Age: 79 Year
  Sex: Female

DRUGS (11)
  1. SEROQUEL [Suspect]
     Route: 048
  2. NEXIUM [Concomitant]
  3. ACTONEL [Concomitant]
  4. ATENOLOL [Concomitant]
  5. CALCIUM [Concomitant]
  6. CLONAZEPAM [Concomitant]
  7. METFORMIN HCL [Concomitant]
  8. MIRTAZAPINE [Concomitant]
  9. NITROGLYCERIN [Concomitant]
  10. RAMIPRIL [Concomitant]
  11. VITAMIN D [Concomitant]

REACTIONS (3)
  - BLOOD CREATINE PHOSPHOKINASE INCREASED [None]
  - MUSCULAR WEAKNESS [None]
  - MYALGIA [None]
